FAERS Safety Report 9576409 (Version 2)
Quarter: 2013Q4

REPORT INFORMATION
  Report Type: Spontaneous
  Country: US (occurrence: US)
  Receive Date: 20131001
  Receipt Date: 20131001
  Transmission Date: 20140711
  Serious: No
  Sender: FDA-Public Use
  Company Number: US-AMGEN-USASP2013000216

PATIENT
  Age: 43 Year
  Sex: Male
  Weight: 82.09 kg

DRUGS (5)
  1. ENBREL [Suspect]
     Indication: RHEUMATOID ARTHRITIS
     Dosage: 50 MG, QWK
     Route: 058
     Dates: start: 20040802
  2. METHOTREXATE [Concomitant]
     Dosage: UNK
     Dates: start: 2005, end: 2005
  3. OXYCODONE-ACET [Concomitant]
     Indication: PAIN
     Dosage: 5/325 EVERY 4 HOURS UNK, EVERY 4 HOURS
     Route: 048
  4. IBUPROFEN [Concomitant]
     Indication: PAIN
     Dosage: 200 UNK, QID
     Route: 048
  5. PREDNISONE [Concomitant]
     Indication: INFLAMMATION
     Dosage: 5 UNK, BID
     Route: 048
     Dates: start: 20120504

REACTIONS (9)
  - Personality change [Unknown]
  - Mood altered [Unknown]
  - Irritability [Unknown]
  - Hypoaesthesia [Recovered/Resolved]
  - Joint swelling [Recovered/Resolved]
  - Mobility decreased [Recovered/Resolved]
  - Nodule [Not Recovered/Not Resolved]
  - Pain [Recovered/Resolved]
  - Paraesthesia [Recovered/Resolved]
